FAERS Safety Report 22806972 (Version 4)
Quarter: 2024Q1

REPORT INFORMATION
  Report Type: Report from Study
  Country: JP (occurrence: JP)
  Receive Date: 20230810
  Receipt Date: 20240212
  Transmission Date: 20240410
  Serious: Yes (Other)
  Sender: FDA-Public Use
  Company Number: JP-SA-2023SA239866

PATIENT
  Age: 74 Year
  Sex: Male

DRUGS (11)
  1. VANDETANIB [Suspect]
     Active Substance: VANDETANIB
     Indication: Medullary thyroid cancer
     Dosage: DAILY DOSE: 300 MG
     Route: 048
     Dates: start: 20210106, end: 20210608
  2. VANDETANIB [Suspect]
     Active Substance: VANDETANIB
     Dosage: DAILY DOSE: 200 MG
     Route: 048
     Dates: start: 20210609, end: 20211123
  3. VANDETANIB [Suspect]
     Active Substance: VANDETANIB
     Dosage: UNK
     Route: 048
     Dates: start: 20220302
  4. SILODOSIN OD [Concomitant]
     Indication: Prostate cancer
     Route: 048
  5. TADALAFIL [Concomitant]
     Active Substance: TADALAFIL
     Indication: Prostate cancer
     Route: 048
  6. BICALUTAMIDE [Concomitant]
     Active Substance: BICALUTAMIDE
     Indication: Prostate cancer
     Route: 048
  7. MIYA-BM [Concomitant]
     Active Substance: CLOSTRIDIUM BUTYRICUM SPORES STRAIN M-55
     Indication: Diarrhoea
     Route: 048
  8. CALCIUM POLYCARBOPHIL [Concomitant]
     Active Substance: CALCIUM POLYCARBOPHIL
     Indication: Diarrhoea
     Route: 048
  9. AMLODIPINE BESYLATE [Concomitant]
     Active Substance: AMLODIPINE BESYLATE
     Indication: Prophylaxis
     Dosage: DAILY DOSE: 7.5 MG
     Route: 048
     Dates: start: 20210512, end: 20220112
  10. AMLODIPINE BESYLATE [Concomitant]
     Active Substance: AMLODIPINE BESYLATE
     Indication: Hypertension
     Dosage: DAILY DOSE: 5 MG
     Route: 048
     Dates: start: 20210120, end: 20210511
  11. AMLODIPINE BESYLATE [Concomitant]
     Active Substance: AMLODIPINE BESYLATE
     Dosage: DAILY DOSE: 2.5 MG
     Route: 048
     Dates: start: 20210106, end: 20210119

REACTIONS (5)
  - Ocular ischaemic syndrome [Recovering/Resolving]
  - Cerebral infarction [Unknown]
  - Basal cell carcinoma [Recovered/Resolved]
  - Dermatitis acneiform [Recovered/Resolved]
  - Hypertension [Recovering/Resolving]

NARRATIVE: CASE EVENT DATE: 20210120
